FAERS Safety Report 5123307-1 (Version None)
Quarter: 2006Q4

REPORT INFORMATION
  Report Type: 
  Country: None (occurrence: None)
  Receive Date: 20061009
  Receipt Date: 20060803
  Transmission Date: 20070319
  Serious: Yes (Other)
  Sender: FDA-Public Use
  Company Number: US-BRISTOL-MYERS SQUIBB COMPANY-13466321

PATIENT
  Age: 56 Year
  Sex: Male

DRUGS (18)
  1. KENALOG-40 [Suspect]
     Indication: MACULAR OEDEMA
     Route: 031
     Dates: start: 20060526, end: 20060526
  2. KENALOG-40 [Suspect]
     Indication: DIABETIC RETINOPATHY
     Route: 031
     Dates: start: 20060526, end: 20060526
  3. VIGAMOX [Concomitant]
     Route: 031
  4. PROPARACAINE HCL [Concomitant]
     Route: 031
  5. BETADINE [Concomitant]
  6. BYETTA [Concomitant]
  7. INSULIN [Concomitant]
  8. METOPROLOL TARTRATE [Concomitant]
  9. LIPITOR [Concomitant]
  10. FUROSEMIDE [Concomitant]
  11. COZAAR [Concomitant]
  12. ASPIRIN [Concomitant]
  13. ADVIL [Concomitant]
  14. GABAPENTIN [Concomitant]
  15. IRON [Concomitant]
  16. VITAMIN B COMPLEX CAP [Concomitant]
  17. TESTOSTERONE [Concomitant]
  18. ZYMAR [Concomitant]
     Dates: start: 20060526, end: 20060529

REACTIONS (1)
  - VISION BLURRED [None]
